FAERS Safety Report 8601225-1 (Version None)
Quarter: 2012Q3

REPORT INFORMATION
  Report Type: 
  Country: None (occurrence: None)
  Receive Date: 20120817
  Receipt Date: 20120813
  Transmission Date: 20120928
  Serious: Yes (Hospitalization)
  Sender: FDA-Public Use
  Company Number: PHHY2012CH069887

PATIENT
  Age: 29 Year
  Sex: Male

DRUGS (4)
  1. VALSARTAN [Suspect]
     Indication: HYPERTENSION
     Dosage: 80 MG, DAILY
  2. VENLAFAXINE [Concomitant]
     Dosage: 150 MG, DAILY
  3. AMLODIPINE [Suspect]
     Dosage: 5 MG, DAILY
  4. ASPIRIN [Concomitant]
     Dosage: 100 MG, DAILY

REACTIONS (10)
  - HYPERSOMNIA [None]
  - HEART RATE INCREASED [None]
  - DIZZINESS [None]
  - DIZZINESS POSTURAL [None]
  - CONSTIPATION [None]
  - ABDOMINAL PAIN [None]
  - DYSPNOEA [None]
  - POSTURAL ORTHOSTATIC TACHYCARDIA SYNDROME [None]
  - FATIGUE [None]
  - SOMNOLENCE [None]
